FAERS Safety Report 16057132 (Version 1)
Quarter: 2019Q1

REPORT INFORMATION
  Report Type: Spontaneous
  Country: US (occurrence: US)
  Receive Date: 20190209
  Receipt Date: 20190209
  Transmission Date: 20190418
  Serious: Yes (Hospitalization, Disabling, Other)
  Sender: FDA-Public Use
  Company Number: None

PATIENT
  Age: 24 Year
  Sex: Male
  Weight: 63 kg

DRUGS (9)
  1. ALPRAZOLAM. [Suspect]
     Active Substance: ALPRAZOLAM
     Indication: PAIN
     Dates: start: 20120101, end: 20181201
  2. DIAZEPAM. [Suspect]
     Active Substance: DIAZEPAM
     Dates: start: 20120101, end: 20181201
  3. GABAPENTIN. [Suspect]
     Active Substance: GABAPENTIN
  4. BACLOFEN. [Suspect]
     Active Substance: BACLOFEN
  5. CLONAZEPAM. [Suspect]
     Active Substance: CLONAZEPAM
     Indication: PAIN
  6. ALPRAZOLAM. [Suspect]
     Active Substance: ALPRAZOLAM
     Indication: ANXIETY DISORDER
     Dates: start: 20120101, end: 20181201
  7. CLONAZEPAM. [Suspect]
     Active Substance: CLONAZEPAM
     Indication: ANXIETY DISORDER
  8. TEMAZEPAM. [Suspect]
     Active Substance: TEMAZEPAM
     Indication: PAIN
     Dates: start: 20120101, end: 20181201
  9. TEMAZEPAM. [Suspect]
     Active Substance: TEMAZEPAM
     Indication: ANXIETY DISORDER
     Dates: start: 20120101, end: 20181201

REACTIONS (7)
  - Pudendal canal syndrome [None]
  - Aphasia [None]
  - Musculoskeletal pain [None]
  - Movement disorder [None]
  - Mental disorder [None]
  - Suicidal ideation [None]
  - Memory impairment [None]

NARRATIVE: CASE EVENT DATE: 20170101
